FAERS Safety Report 18219685 (Version 1)
Quarter: 2020Q3

REPORT INFORMATION
  Report Type: Spontaneous
  Country: US (occurrence: US)
  Receive Date: 20200901
  Receipt Date: 20200901
  Transmission Date: 20201103
  Serious: Yes (Hospitalization, Other)
  Sender: FDA-Public Use
  Company Number: US-DOVA PHARMACEUTICALS INC.-DOV-000622

PATIENT
  Age: 64 Year
  Sex: Male

DRUGS (2)
  1. DOPTELET [Suspect]
     Active Substance: AVATROMBOPAG MALEATE
     Indication: IMMUNE THROMBOCYTOPENIA
     Dosage: 40 MG, QD
     Route: 048
     Dates: start: 202001, end: 20200724
  2. NPLATE [Concomitant]
     Active Substance: ROMIPLOSTIM
     Indication: PRODUCT USED FOR UNKNOWN INDICATION
     Dosage: UNK, PRN
     Route: 058

REACTIONS (3)
  - Hospitalisation [Recovered/Resolved]
  - Deep vein thrombosis [Recovered/Resolved]
  - Inappropriate schedule of product administration [Unknown]

NARRATIVE: CASE EVENT DATE: 20200724
